FAERS Safety Report 7215974-3 (Version None)
Quarter: 2011Q1

REPORT INFORMATION
  Report Type: 
  Country: None (occurrence: None)
  Receive Date: 20110107
  Receipt Date: 20101230
  Transmission Date: 20110831
  Serious: Yes (Life-Threatening, Hospitalization)
  Sender: FDA-Public Use
  Company Number: FR-KINGPHARMUSA00001-K201001564

PATIENT
  Age: 89 Year
  Sex: Female

DRUGS (6)
  1. LASIX [Suspect]
     Indication: CARDIAC FAILURE
     Dosage: 60 MG, QD
     Route: 048
     Dates: start: 20100515
  2. PREVISCAN [Concomitant]
     Dosage: UNK
  3. AMAREL [Concomitant]
     Dosage: UNK
  4. CARDENSIEL [Concomitant]
     Dosage: UNK
  5. ALTACE [Suspect]
     Indication: CARDIAC FAILURE
     Dosage: 2.5 MG, QD
     Route: 048
     Dates: start: 20100515
  6. METFORMIN [Suspect]
     Indication: TYPE 2 DIABETES MELLITUS
     Dosage: 1000 MG, TID
     Route: 048
     Dates: end: 20101111

REACTIONS (6)
  - DEHYDRATION [None]
  - RENAL FAILURE [None]
  - DIARRHOEA [None]
  - SHOCK [None]
  - DRUG INTERACTION [None]
  - LACTIC ACIDOSIS [None]
